FAERS Safety Report 9897216 (Version 1)
Quarter: 2014Q1

REPORT INFORMATION
  Report Type: Report from Study
  Country: US (occurrence: US)
  Receive Date: 20140214
  Receipt Date: 20140214
  Transmission Date: 20141002
  Serious: Yes (Death)
  Sender: FDA-Public Use
  Company Number: US-ROCHE-1326146

PATIENT
  Age: 57 Year
  Sex: Female

DRUGS (37)
  1. AVASTIN [Suspect]
     Indication: LUNG NEOPLASM MALIGNANT
     Dosage: ALSO RECEIVED ON 09/JUN/2011, 30/JUN/2011, 28/JUL/2011, 18/AUG/2011 AND 08/NOV/2011.
     Route: 042
     Dates: start: 201105, end: 20111201
  2. AVASTIN [Suspect]
     Dosage: ALSO RECEIVED ON 09/FEB/2012, 01/MAR/2012, 24/APR/2012, 07/JUN/2012, 28/JUN/2012 AND 02/AUG/2012
     Route: 042
     Dates: start: 20120202, end: 20120830
  3. VITAMIN B12 [Concomitant]
     Dosage: 1000 MCG
     Route: 030
     Dates: start: 20110525
  4. ATIVAN [Concomitant]
     Route: 042
     Dates: start: 20110525, end: 20110525
  5. ALIMTA [Concomitant]
     Dosage: 825MG TO 486MG
     Route: 065
     Dates: start: 20110609, end: 20111213
  6. ALIMTA [Concomitant]
     Route: 065
     Dates: start: 20110728
  7. ALIMTA [Concomitant]
     Route: 065
     Dates: start: 20111108
  8. ALIMTA [Concomitant]
     Route: 065
     Dates: start: 20120209
  9. ARIXTRA [Concomitant]
     Route: 058
     Dates: start: 20120131, end: 20120405
  10. ARIXTRA [Concomitant]
     Route: 058
     Dates: start: 20120202, end: 20120207
  11. ARIXTRA [Concomitant]
     Route: 058
     Dates: start: 20120202
  12. CLARITIN [Concomitant]
     Dosage: PRN
     Route: 065
  13. DILAUDID [Concomitant]
     Route: 065
  14. FENTANYL [Concomitant]
     Dosage: 12 MCG/HR
     Route: 062
  15. ALBUTEROL/IPRATROPIUM [Concomitant]
     Dosage: 18 MCG - 103 MCG
     Route: 055
  16. LIDODERM [Concomitant]
     Indication: PAIN
     Dosage: 700 MG/PATCH PRN Q12HRS
     Route: 061
  17. NEURONTIN (UNITED STATES) [Concomitant]
     Dosage: INCREASE AS DIRECTED
     Route: 048
  18. OMEPRAZOLE [Concomitant]
     Route: 048
  19. SYMBICORT [Concomitant]
     Dosage: 160 MCG-4.5 MCG
     Route: 055
  20. TESSALON PERLE [Concomitant]
     Indication: COUGH
     Dosage: 1 TID PRN
     Route: 048
  21. VENTOLIN HFA [Concomitant]
     Indication: WHEEZING
     Dosage: 90 MCG  1 PUFF QID PRN
     Route: 055
  22. VENTOLIN HFA [Concomitant]
     Indication: DYSPNOEA
  23. ALOXI [Concomitant]
     Dosage: 250 MCG
     Route: 065
     Dates: start: 20110609
  24. DECADRON [Concomitant]
     Route: 065
     Dates: start: 20110609
  25. DECADRON [Concomitant]
     Route: 065
     Dates: start: 20110630
  26. DECADRON [Concomitant]
     Route: 065
     Dates: start: 20120425
  27. LOVENOX [Concomitant]
     Route: 065
     Dates: start: 20120202
  28. FOLIC ACID [Concomitant]
     Dosage: 400 MCG
     Route: 065
     Dates: start: 20120209
  29. BENADRYL (UNITED STATES) [Concomitant]
     Route: 065
     Dates: start: 20120209
  30. ZOFRAN [Concomitant]
     Route: 042
     Dates: start: 20120628
  31. ZOFRAN [Concomitant]
     Dosage: Q 6 HOURS
     Route: 065
  32. ZOFRAN [Concomitant]
     Route: 042
     Dates: start: 20120813
  33. NEULASTA [Concomitant]
     Route: 065
     Dates: start: 20120425
  34. FOSAPREPITANT DIMEGLUMINE [Concomitant]
     Route: 065
     Dates: start: 20120607
  35. CARBOPLATIN [Concomitant]
     Route: 065
     Dates: start: 20120209
  36. CARBOPLATIN [Concomitant]
     Dosage: 500/AUC3 PEMETREXED/CARBOPLATIN
     Route: 065
     Dates: start: 20120202, end: 20121011
  37. PEMETREXED [Concomitant]
     Dosage: 500/AUC3 PEMETREXED/CARBOPLATIN
     Route: 065
     Dates: start: 20120202, end: 20121011

REACTIONS (2)
  - Death [Fatal]
  - Nausea [Unknown]
